FAERS Safety Report 22629106 (Version 2)
Quarter: 2023Q2

REPORT INFORMATION
  Report Type: Spontaneous
  Country: CN (occurrence: CN)
  Receive Date: 20230622
  Receipt Date: 20230630
  Transmission Date: 20230721
  Serious: Yes (Hospitalization, Other)
  Sender: FDA-Public Use
  Company Number: CN-SA-SAC20230620001125

PATIENT
  Age: 54 Year
  Sex: Male
  Weight: 70 kg

DRUGS (6)
  1. VALPROATE SODIUM [Suspect]
     Active Substance: VALPROATE SODIUM
     Indication: Seizure prophylaxis
     Dosage: 1200 MG, QD
     Route: 041
     Dates: start: 20230415, end: 20230428
  2. VALPROIC ACID [Suspect]
     Active Substance: VALPROIC ACID
     Indication: Seizure prophylaxis
     Dosage: 500 MG, BID
     Route: 048
     Dates: start: 20230428, end: 20230608
  3. BUMETANIDE [Suspect]
     Active Substance: BUMETANIDE
     Indication: Polyuria
     Dosage: 1 MG, BID
     Route: 042
     Dates: start: 20230422, end: 20230519
  4. MEROPENEM [Suspect]
     Active Substance: MEROPENEM
     Indication: Intracranial infection
     Dosage: 2 G, TID
     Route: 041
     Dates: start: 20230505, end: 20230518
  5. LEVAMLODIPINE MALEATE [Suspect]
     Active Substance: LEVAMLODIPINE MALEATE
     Indication: Hypertension
     Dosage: 2.5 MG, QD
     Route: 048
     Dates: start: 20230420, end: 20230606
  6. RANITIDINE HYDROCHLORIDE [Suspect]
     Active Substance: RANITIDINE HYDROCHLORIDE
     Indication: Prophylaxis against gastrointestinal ulcer
     Dosage: 50 MG, BID
     Route: 041
     Dates: start: 20230415, end: 20230607

REACTIONS (7)
  - Intracranial infection [Recovering/Resolving]
  - Pancytopenia [Recovering/Resolving]
  - Neutrophil count decreased [Recovering/Resolving]
  - Granulocyte count decreased [Recovering/Resolving]
  - Platelet count decreased [Recovering/Resolving]
  - Haemoglobin decreased [Recovering/Resolving]
  - Lethargy [Recovering/Resolving]

NARRATIVE: CASE EVENT DATE: 20230422
